FAERS Safety Report 4522761-3 (Version None)
Quarter: 2004Q4

REPORT INFORMATION
  Report Type: 
  Country: None (occurrence: None)
  Receive Date: 20041207
  Receipt Date: 20041122
  Transmission Date: 20050328
  Serious: Yes (Hospitalization)
  Sender: FDA-Public Use
  Company Number: 2004-BP-13083YA

PATIENT
  Age: 82 Year
  Sex: Male

DRUGS (2)
  1. OMIX                (TAMSULOSIN HYDROCHLORIDE) [Suspect]
     Indication: ASTHMA
     Dosage: 0.4 MG PO
     Route: 048
     Dates: start: 20040718
  2. SYMBICORT [Suspect]
     Indication: BRONCHITIS CHRONIC
     Dates: start: 20030415, end: 20040718

REACTIONS (7)
  - HYPOTHERMIA [None]
  - PANCREATIC DISORDER [None]
  - PANCREATIC HAEMORRHAGE [None]
  - PANCREATITIS ACUTE [None]
  - PERIPANCREATIC FLUID COLLECTION [None]
  - SCAN ABNORMAL [None]
  - STAPHYLOCOCCAL SEPSIS [None]
